FAERS Safety Report 25713521 (Version 3)
Quarter: 2025Q4

REPORT INFORMATION
  Report Type: Report from Study
  Country: KR (occurrence: KR)
  Receive Date: 20250822
  Receipt Date: 20251211
  Transmission Date: 20260118
  Serious: Yes (Death, Other)
  Sender: ABBVIE
  Company Number: KR-ABBVIE-6389516

PATIENT
  Age: 82 Year
  Sex: Male
  Weight: 66 kg

DRUGS (18)
  1. VENCLEXTA [Suspect]
     Active Substance: VENETOCLAX
     Indication: Acute myeloid leukaemia
     Route: 048
     Dates: start: 20250617, end: 20250722
  2. ACYCLOVIR [Concomitant]
     Active Substance: ACYCLOVIR
     Indication: Acute myeloid leukaemia
     Dosage: 200 MG
     Route: 048
     Dates: start: 20250617, end: 20250620
  3. Angibid sr [Concomitant]
     Indication: Atrial fibrillation
     Route: 048
     Dates: start: 20250715
  4. NICORANDIL [Concomitant]
     Active Substance: NICORANDIL
     Indication: Myocardial bridging
     Dosage: 5 MG
     Route: 048
     Dates: start: 20250715
  5. MIRABEGRON [Concomitant]
     Active Substance: MIRABEGRON
     Indication: Nocturia
     Dosage: BETMIGA PR TAB 50MG
     Route: 048
     Dates: start: 20250618
  6. VIDAZA [Concomitant]
     Active Substance: AZACITIDINE
     Indication: Acute myeloid leukaemia
     Route: 042
     Dates: start: 20250716, end: 20250722
  7. VIDAZA [Concomitant]
     Active Substance: AZACITIDINE
     Indication: Acute myeloid leukaemia
     Route: 042
     Dates: start: 20250617, end: 20250623
  8. NOXAFIL [Concomitant]
     Active Substance: POSACONAZOLE
     Indication: Acute myeloid leukaemia
     Dosage: NOXAFIL GASTRO RESISTANT TAB 100MG
     Route: 048
     Dates: start: 20250618
  9. ACETYLCYSTEINE [Concomitant]
     Active Substance: ACETYLCYSTEINE
     Indication: Acute myeloid leukaemia
     Dosage: TIME INTERVAL: 0.33333333 DAYS: 100MG/ML 3ML/A
     Route: 042
     Dates: start: 20250717
  10. ZYPREXA [Concomitant]
     Active Substance: OLANZAPINE
     Indication: Acute myeloid leukaemia
     Dosage: 5 MG
     Route: 048
     Dates: start: 20250617
  11. BISOPROLOL FUMARATE [Concomitant]
     Active Substance: BISOPROLOL FUMARATE
     Indication: Atrial fibrillation
     Dosage: 2.5 MG
     Route: 048
     Dates: start: 20250714
  12. SANCUSO [Concomitant]
     Active Substance: GRANISETRON
     Indication: Acute myeloid leukaemia
     Dosage: SANCUSO PATCH 80.2X66.6, FREQUENCY TEXT: PATCH
     Dates: start: 20250617, end: 20250715
  13. HARNAL [Concomitant]
     Active Substance: TAMSULOSIN HYDROCHLORIDE
     Indication: Nocturia
     Route: 048
     Dates: start: 20250618
  14. DIGOXIN [Concomitant]
     Active Substance: DIGOXIN
     Indication: Atrial fibrillation
     Route: 048
     Dates: start: 20250714
  15. ALLOPURINOL [Concomitant]
     Active Substance: ALLOPURINOL
     Indication: Acute myeloid leukaemia
     Dosage: 100 MG
     Route: 048
     Dates: start: 20250617, end: 20250717
  16. MINIRIN [Concomitant]
     Active Substance: DESMOPRESSIN ACETATE
     Indication: Atrial fibrillation
     Dosage: 0.1 MG
     Route: 048
     Dates: start: 20250620
  17. Ciproctan [Concomitant]
     Indication: Acute myeloid leukaemia
     Route: 048
     Dates: start: 20250617, end: 20250618
  18. CODEINE PHOSPHATE [Concomitant]
     Active Substance: CODEINE PHOSPHATE
     Indication: Acute myeloid leukaemia
     Dosage: CODEINE PHOSPHATE MYUNGMOON TAB
     Route: 048
     Dates: start: 20250717

REACTIONS (2)
  - Pyrexia [Fatal]
  - Febrile neutropenia [Recovering/Resolving]

NARRATIVE: CASE EVENT DATE: 20250619
